FAERS Safety Report 9891462 (Version 1)
Quarter: 2014Q1

REPORT INFORMATION
  Report Type: Spontaneous
  Country: US (occurrence: None)
  Receive Date: 20140210
  Receipt Date: 20140210
  Transmission Date: 20141002
  Serious: Yes (Death)
  Sender: FDA-Public Use
  Company Number: 2014010079

PATIENT
  Age: 53 Year
  Sex: Female

DRUGS (6)
  1. FENTANYL (FENTANYL) [Suspect]
  2. ZOLPIDEM (ZOLPIDEM) [Suspect]
  3. ETHANOL [Suspect]
  4. ACETAMINOPHEN (ACETAMINOPHEN) [Suspect]
  5. SKELETAL MUSCLE RELAXANT [Suspect]
  6. ACETAMINOPHEN/HYDROCODONE [Suspect]

REACTIONS (1)
  - Exposure via ingestion [None]
